FAERS Safety Report 4626767-5 (Version None)
Quarter: 2005Q1

REPORT INFORMATION
  Report Type: 
  Country: None (occurrence: None)
  Receive Date: 20050331
  Receipt Date: 20050316
  Transmission Date: 20050727
  Serious: Yes (Death)
  Sender: FDA-Public Use
  Company Number: 2005P1000003

PATIENT
  Age: 15 Year

DRUGS (1)
  1. BUSULFAN [Suspect]
     Indication: STEM CELL TRANSPLANT
     Dosage: 4 MG/KG IV
     Route: 042

REACTIONS (8)
  - ACUTE RESPIRATORY DISTRESS SYNDROME [None]
  - BRONCHOPNEUMONIA [None]
  - BRONCHOPULMONARY ASPERGILLOSIS [None]
  - GASTROINTESTINAL CANDIDIASIS [None]
  - GRAFT VERSUS HOST DISEASE [None]
  - LUNG INFECTION PSEUDOMONAL [None]
  - TRANSPLANT FAILURE [None]
  - VENOOCCLUSIVE DISEASE [None]
